FAERS Safety Report 16884069 (Version 2)
Quarter: 2019Q4

REPORT INFORMATION
  Report Type: Spontaneous
  Country: US (occurrence: US)
  Receive Date: 20191004
  Receipt Date: 20191107
  Transmission Date: 20200122
  Serious: No
  Sender: FDA-Public Use
  Company Number: US-ASTRAZENECA-2019SF29009

PATIENT
  Age: 20672 Day
  Sex: Female
  Weight: 68.5 kg

DRUGS (9)
  1. FLUOCINONIDE. [Concomitant]
     Active Substance: FLUOCINONIDE
  2. BIOTIN [Concomitant]
     Active Substance: BIOTIN
  3. CETRIZINE [Concomitant]
     Active Substance: CETIRIZINE HYDROCHLORIDE
  4. MULTIVITAMIN [Concomitant]
     Active Substance: VITAMINS
  5. ALBUTEROL. [Concomitant]
     Active Substance: ALBUTEROL
  6. FLUTICASONE. [Concomitant]
     Active Substance: FLUTICASONE
  7. MONTELUKAST [Concomitant]
     Active Substance: MONTELUKAST SODIUM
  8. VARENICLINE [Concomitant]
     Active Substance: VARENICLINE
  9. FASENRA [Suspect]
     Active Substance: BENRALIZUMAB
     Indication: ASTHMA
     Dosage: 30MG/ML EVERY EIGHT WEEKS
     Route: 058
     Dates: start: 20190131, end: 20190718

REACTIONS (3)
  - Anaemia [Unknown]
  - Thyroid disorder [Unknown]
  - Alopecia [Unknown]

NARRATIVE: CASE EVENT DATE: 20190725
